FAERS Safety Report 23677252 (Version 1)
Quarter: 2024Q1

REPORT INFORMATION
  Report Type: Other
  Country: CA (occurrence: CA)
  Receive Date: 20240327
  Receipt Date: 20240327
  Transmission Date: 20240410
  Serious: Yes (Death, Other)
  Sender: FDA-Public Use
  Company Number: CA-APOTEX-2024AP003895

PATIENT
  Age: 62 Year
  Sex: Male

DRUGS (1)
  1. RISPERIDONE [Suspect]
     Active Substance: RISPERIDONE
     Indication: Alcohol detoxification
     Dosage: UNK
     Route: 065

REACTIONS (4)
  - Accidental death [Fatal]
  - Ventricular arrhythmia [Unknown]
  - Cardio-respiratory arrest [Unknown]
  - Electrocardiogram QT prolonged [Unknown]
